FAERS Safety Report 5562747-3 (Version None)
Quarter: 2007Q4

REPORT INFORMATION
  Report Type: 
  Country: None (occurrence: None)
  Receive Date: 20071217
  Receipt Date: 20071212
  Transmission Date: 20080405
  Serious: Yes (Other)
  Sender: FDA-Public Use
  Company Number: PHMT2007CA02402

PATIENT
  Age: 11 Year
  Sex: Male
  Weight: 52.607 kg

DRUGS (1)
  1. RITALIN [Suspect]
     Indication: ATTENTION DEFICIT/HYPERACTIVITY DISORDER
     Dosage: 30 MG, 1.5 TABLETS OF 10 MG BID
     Route: 048

REACTIONS (1)
  - HALLUCINATION, VISUAL [None]
